FAERS Safety Report 9032146 (Version 1)
Quarter: 2013Q1

REPORT INFORMATION
  Report Type: Spontaneous
  Country: NZ (occurrence: NZ)
  Receive Date: 20130122
  Receipt Date: 20130122
  Transmission Date: 20140127
  Serious: Yes (Hospitalization)
  Sender: FDA-Public Use
  Company Number: NZ-NOVOPROD-368207

PATIENT
  Age: 8 Year
  Sex: Female

DRUGS (1)
  1. NORDITROPIN [Suspect]

REACTIONS (1)
  - Lymphangiectasia [Unknown]
